FAERS Safety Report 24748043 (Version 1)
Quarter: 2024Q4

REPORT INFORMATION
  Report Type: Spontaneous
  Country: US (occurrence: None)
  Receive Date: 20241217
  Receipt Date: 20241217
  Transmission Date: 20250114
  Serious: Yes (Other)
  Sender: Public
  Company Number: None

PATIENT
  Age: 40 Year
  Sex: Female
  Weight: 117 kg

DRUGS (3)
  1. PAMABROM [Suspect]
     Active Substance: PAMABROM
     Indication: Abdominal distension
     Dates: start: 20241215, end: 20241216
  2. ASPIRIN [Concomitant]
     Active Substance: ASPIRIN
  3. CLARITIN [Suspect]
     Active Substance: LORATADINE

REACTIONS (5)
  - Weight increased [None]
  - Fluid retention [None]
  - Breast disorder [None]
  - Paralysis [None]
  - Electric shock sensation [None]

NARRATIVE: CASE EVENT DATE: 20241215
